FAERS Safety Report 13803357 (Version 2)
Quarter: 2017Q4

REPORT INFORMATION
  Report Type: Spontaneous
  Country: US (occurrence: US)
  Receive Date: 20170728
  Receipt Date: 20171106
  Transmission Date: 20180320
  Serious: No
  Sender: FDA-Public Use
  Company Number: US-CELGENEUS-USA-20170706719

PATIENT
  Sex: Male

DRUGS (1)
  1. OTEZLA [Suspect]
     Active Substance: APREMILAST
     Indication: PSORIASIS
     Dosage: 60 MILLIGRAM
     Route: 048
     Dates: start: 20151211

REACTIONS (5)
  - Back pain [Unknown]
  - Drug dose omission [Unknown]
  - Musculoskeletal discomfort [Not Recovered/Not Resolved]
  - Psoriasis [Unknown]
  - Influenza [Unknown]
